FAERS Safety Report 24744711 (Version 1)
Quarter: 2024Q4

REPORT INFORMATION
  Report Type: Spontaneous
  Country: US (occurrence: None)
  Receive Date: 20241217
  Receipt Date: 20241217
  Transmission Date: 20250114
  Serious: Yes (Hospitalization, Other)
  Sender: Public
  Company Number: None

PATIENT
  Age: 73 Year
  Sex: Male
  Weight: 80.1 kg

DRUGS (6)
  1. ADSTILADRIN [Suspect]
     Active Substance: NADOFARAGENE FIRADENOVEC-VNCG
     Indication: Bladder cancer
     Dates: start: 20241205, end: 20241205
  2. MELOXICAM [Concomitant]
     Active Substance: MELOXICAM
  3. PRILOSEC [Concomitant]
     Active Substance: OMEPRAZOLE MAGNESIUM
  4. Zocor Flomax [Concomitant]
  5. FISH OIL [Concomitant]
     Active Substance: FISH OIL
  6. TYLENOL [Concomitant]
     Active Substance: ACETAMINOPHEN

REACTIONS (10)
  - Tremor [None]
  - Vomiting [None]
  - Chills [None]
  - Pain [None]
  - Pyrexia [None]
  - Syncope [None]
  - Head injury [None]
  - Unresponsive to stimuli [None]
  - Weight decreased [None]
  - Circumstance or information capable of leading to medication error [None]

NARRATIVE: CASE EVENT DATE: 20241205
